FAERS Safety Report 5892502-6 (Version None)
Quarter: 2008Q3

REPORT INFORMATION
  Report Type: 
  Country: None (occurrence: None)
  Receive Date: 20080919
  Receipt Date: 20080912
  Transmission Date: 20090109
  Serious: Yes (Disabling, Other)
  Sender: FDA-Public Use
  Company Number: OSCN-PR-0702S-0106

PATIENT
  Age: 77 Year
  Sex: Male

DRUGS (11)
  1. OMNISCAN [Suspect]
     Indication: BACK PAIN
     Dosage: 30 ML, SINGLE DOSE; SINGLE DOSE; SINGLE DOSE; SINGLE DOSE
     Dates: start: 20020319, end: 20020319
  2. OMNISCAN [Suspect]
     Indication: DRUG USE FOR UNKNOWN INDICATION
     Dosage: 30 ML, SINGLE DOSE; SINGLE DOSE; SINGLE DOSE; SINGLE DOSE
     Dates: start: 20020319, end: 20020319
  3. OMNISCAN [Suspect]
     Indication: BACK PAIN
     Dosage: 30 ML, SINGLE DOSE; SINGLE DOSE; SINGLE DOSE; SINGLE DOSE
     Dates: start: 20040322, end: 20040322
  4. OMNISCAN [Suspect]
     Indication: DRUG USE FOR UNKNOWN INDICATION
     Dosage: 30 ML, SINGLE DOSE; SINGLE DOSE; SINGLE DOSE; SINGLE DOSE
     Dates: start: 20040322, end: 20040322
  5. OMNISCAN [Suspect]
     Indication: BACK PAIN
     Dosage: 30 ML, SINGLE DOSE; SINGLE DOSE; SINGLE DOSE; SINGLE DOSE
     Dates: start: 20060608, end: 20060608
  6. OMNISCAN [Suspect]
     Indication: DRUG USE FOR UNKNOWN INDICATION
     Dosage: 30 ML, SINGLE DOSE; SINGLE DOSE; SINGLE DOSE; SINGLE DOSE
     Dates: start: 20060608, end: 20060608
  7. OMNISCAN [Suspect]
     Indication: BACK PAIN
     Dosage: 30 ML, SINGLE DOSE; SINGLE DOSE; SINGLE DOSE; SINGLE DOSE
     Dates: start: 20060829, end: 20060829
  8. OMNISCAN [Suspect]
     Indication: DRUG USE FOR UNKNOWN INDICATION
     Dosage: 30 ML, SINGLE DOSE; SINGLE DOSE; SINGLE DOSE; SINGLE DOSE
     Dates: start: 20060829, end: 20060829
  9. RENAGEL [Concomitant]
  10. EPOETIN ALFA [Concomitant]
  11. GLUCAGON [Concomitant]

REACTIONS (1)
  - NEPHROGENIC SYSTEMIC FIBROSIS [None]
